FAERS Safety Report 24375892 (Version 1)
Quarter: 2024Q3

REPORT INFORMATION
  Report Type: Spontaneous
  Country: CN (occurrence: CN)
  Receive Date: 20240928
  Receipt Date: 20240928
  Transmission Date: 20241016
  Serious: Yes (Other)
  Sender: BAXTER
  Company Number: None

PATIENT
  Age: 5 Year
  Sex: Male
  Weight: 13.6 kg

DRUGS (10)
  1. IFOSFAMIDE [Suspect]
     Active Substance: IFOSFAMIDE
     Indication: Acute lymphocytic leukaemia
     Dosage: 488 MG TWO TIMES IN ONE DAY (Q12H FOR 5 TIMES)
     Route: 041
     Dates: start: 20240828, end: 20240830
  2. IFOSFAMIDE [Suspect]
     Active Substance: IFOSFAMIDE
     Indication: Chemotherapy
  3. METHOTREXATE [Suspect]
     Active Substance: METHOTREXATE
     Indication: Acute lymphocytic leukaemia
     Dosage: 3050 MG ONE TIME IN ONE DAY, IMPORT
     Route: 041
     Dates: start: 20240827, end: 20240827
  4. METHOTREXATE [Suspect]
     Active Substance: METHOTREXATE
     Indication: Chemotherapy
  5. VINCRISTINE [Suspect]
     Active Substance: VINCRISTINE
     Indication: Acute lymphocytic leukaemia
     Dosage: 0.9 MG, ONE TIME IN ONE DAY
     Route: 041
     Dates: start: 20240827, end: 20240827
  6. VINCRISTINE [Suspect]
     Active Substance: VINCRISTINE
     Indication: Chemotherapy
     Dosage: 0.9 MG
     Route: 041
     Dates: start: 20240831, end: 20240831
  7. PEGASPARGASE [Suspect]
     Active Substance: PEGASPARGASE
     Indication: Acute lymphocytic leukaemia
     Dosage: 1525 IU, ONE TIME IN ONE DAY
     Route: 030
     Dates: start: 20240827, end: 20240827
  8. PEGASPARGASE [Suspect]
     Active Substance: PEGASPARGASE
     Indication: Chemotherapy
     Dosage: 1525 IU
     Route: 030
     Dates: start: 20240912, end: 20240912
  9. DAUNORUBICIN [Suspect]
     Active Substance: DAUNORUBICIN
     Indication: Acute lymphocytic leukaemia
     Dosage: 18MG
     Route: 041
     Dates: start: 20240831, end: 20240831
  10. DAUNORUBICIN [Suspect]
     Active Substance: DAUNORUBICIN
     Indication: Chemotherapy

REACTIONS (1)
  - Hypofibrinogenaemia [Recovering/Resolving]

NARRATIVE: CASE EVENT DATE: 20240830
